FAERS Safety Report 4299100-9 (Version None)
Quarter: 2004Q1

REPORT INFORMATION
  Report Type: 
  Country: None (occurrence: None)
  Receive Date: 20040217
  Receipt Date: 20040203
  Transmission Date: 20041129
  Serious: Yes (Disabling, Other)
  Sender: FDA-Public Use
  Company Number: HQWYE068807OCT03

PATIENT
  Age: 50 Year
  Sex: Female
  Weight: 61.29 kg

DRUGS (2)
  1. EFFEXOR [Suspect]
     Indication: FLUSHING
     Dosage: SEE IMAGE
     Route: 048
     Dates: start: 20030601
  2. ARIMIDEX ^ZENECA^ (ANASTROZOLE) [Concomitant]

REACTIONS (4)
  - INSOMNIA [None]
  - MYDRIASIS [None]
  - VISION BLURRED [None]
  - VISUAL DISTURBANCE [None]
